FAERS Safety Report 22247586 (Version 2)
Quarter: 2023Q2

REPORT INFORMATION
  Report Type: Other
  Country: CO (occurrence: CO)
  Receive Date: 20230425
  Receipt Date: 20230523
  Transmission Date: 20230721
  Serious: Yes (Hospitalization, Other)
  Sender: FDA-Public Use
  Company Number: CO-002147023-PHHY2019CO203773

PATIENT
  Age: 79 Year
  Sex: Female
  Weight: 68 kg

DRUGS (6)
  1. XOLAIR [Suspect]
     Active Substance: OMALIZUMAB
     Indication: Asthma
     Route: 058
     Dates: start: 2018
  2. XOLAIR [Suspect]
     Active Substance: OMALIZUMAB
     Route: 058
  3. ALBUTEROL [Suspect]
     Active Substance: ALBUTEROL
     Indication: Product used for unknown indication
     Route: 055
  4. AEROVIAL (COLOMBIA) [Concomitant]
     Indication: Product used for unknown indication
     Dosage: 1 DOSAGE FORM, Q12H
  5. BISOPROLOL FUMARATE [Concomitant]
     Active Substance: BISOPROLOL FUMARATE
     Indication: Product used for unknown indication
     Dosage: 1 DF, QD
     Route: 065
  6. LEVOTHYROXINE [Concomitant]
     Active Substance: LEVOTHYROXINE
     Indication: Product used for unknown indication
     Dosage: 1 DF, QD
     Route: 065

REACTIONS (8)
  - Vomiting [Recovered/Resolved]
  - Faeces discoloured [Recovered/Resolved]
  - Ulcer haemorrhage [Unknown]
  - Haemoglobin decreased [Unknown]
  - Ulcer [Unknown]
  - Dementia Alzheimer^s type [Unknown]
  - Thrombosis [Unknown]
  - Amnesia [Not Recovered/Not Resolved]

NARRATIVE: CASE EVENT DATE: 20180101
